FAERS Safety Report 7043630-3 (Version None)
Quarter: 2010Q4

REPORT INFORMATION
  Report Type: 
  Country: None (occurrence: None)
  Receive Date: 20101013
  Receipt Date: 20101005
  Transmission Date: 20110411
  Serious: Yes (Hospitalization)
  Sender: FDA-Public Use
  Company Number: B0678580A

PATIENT
  Sex: Female

DRUGS (4)
  1. AUGMENTIN '125' [Suspect]
     Indication: SINUSITIS
     Dosage: 1G TWICE PER DAY
     Route: 048
     Dates: start: 20100808, end: 20100816
  2. LEVOFLOXACIN [Suspect]
     Indication: SINUSITIS
     Dosage: 1UNIT PER DAY
     Route: 048
     Dates: start: 20100817, end: 20100826
  3. TACHIPIRINA [Concomitant]
  4. OKI [Concomitant]

REACTIONS (2)
  - NEUTROPENIA [None]
  - PANCYTOPENIA [None]
